FAERS Safety Report 5609190-6 (Version None)
Quarter: 2008Q1

REPORT INFORMATION
  Report Type: 
  Country: None (occurrence: None)
  Receive Date: 20080131
  Receipt Date: 20080123
  Transmission Date: 20080703
  Serious: Yes (Other)
  Sender: FDA-Public Use
  Company Number: US-ASTRAZENECA-2008UW01695

PATIENT
  Age: 59 Year
  Sex: Female
  Weight: 58.5 kg

DRUGS (7)
  1. ARIMIDEX [Suspect]
     Indication: BREAST CANCER FEMALE
     Route: 048
     Dates: start: 20070401
  2. PROZAC [Concomitant]
  3. CONCERTA [Concomitant]
  4. DIOVAN [Concomitant]
  5. DARVOCET [Concomitant]
  6. XANAX [Concomitant]
  7. AMBIEN CR [Concomitant]

REACTIONS (5)
  - ARTHRALGIA [None]
  - CATARACT [None]
  - EXOSTOSIS [None]
  - FALL [None]
  - MUSCLE INJURY [None]
